FAERS Safety Report 26067069 (Version 1)
Quarter: 2025Q4

REPORT INFORMATION
  Report Type: Other
  Country: US (occurrence: US)
  Receive Date: 20251119
  Receipt Date: 20251119
  Transmission Date: 20260119
  Serious: Yes (Hospitalization, Other)
  Sender: NOVITIUM PHARMA
  Company Number: US-NOVITIUM PHARMA-000285

PATIENT
  Age: 47 Year
  Sex: Female

DRUGS (6)
  1. LIDOCAINE [Suspect]
     Active Substance: LIDOCAINE
     Indication: Sinuplasty
  2. AFRIN [Concomitant]
     Active Substance: OXYMETAZOLINE HYDROCHLORIDE
     Indication: Sinuplasty
  3. EPINEPHRINE [Concomitant]
     Active Substance: EPINEPHRINE
     Indication: Sinuplasty
  4. EPINEPHRINE [Concomitant]
     Active Substance: EPINEPHRINE
     Indication: Sinuplasty
  5. LIDOCAINE [Suspect]
     Active Substance: LIDOCAINE
     Indication: Sinusitis
  6. LIDOCAINE [Suspect]
     Active Substance: LIDOCAINE
     Indication: Sinusitis

REACTIONS (1)
  - Acute macular neuroretinopathy [Recovered/Resolved]
